FAERS Safety Report 19419165 (Version 1)
Quarter: 2021Q2

REPORT INFORMATION
  Report Type: Spontaneous
  Country: IE (occurrence: IE)
  Receive Date: 20210615
  Receipt Date: 20210615
  Transmission Date: 20210717
  Serious: Yes (Other)
  Sender: FDA-Public Use
  Company Number: IE-ASTRAZENECA-2021A504580

PATIENT
  Age: 22 Year
  Sex: Female

DRUGS (2)
  1. TEVAQUEL [Suspect]
     Active Substance: QUETIAPINE
     Dosage: 12.5MG ONCE A DAY, BEFORE GOING TO BED
     Route: 048
     Dates: start: 20210507, end: 20210514
  2. CERAZETTE [Concomitant]
     Dosage: 1 PILL ONCE A DAY
     Route: 048
     Dates: start: 20200810

REACTIONS (1)
  - Amnesia [Not Recovered/Not Resolved]

NARRATIVE: CASE EVENT DATE: 20210509
